FAERS Safety Report 6415514-2 (Version None)
Quarter: 2009Q4

REPORT INFORMATION
  Report Type: 
  Country: None (occurrence: None)
  Receive Date: 20091027
  Receipt Date: 20091020
  Transmission Date: 20100525
  Serious: Yes (Other)
  Sender: FDA-Public Use
  Company Number: US-JNJFOC-20060906198

PATIENT
  Sex: Female

DRUGS (1)
  1. RISPERDAL [Suspect]
     Indication: DEPRESSION

REACTIONS (4)
  - AMNESTIC DISORDER [None]
  - DIABETES MELLITUS [None]
  - FEELING ABNORMAL [None]
  - ORTHOSTATIC HYPOTENSION [None]
